FAERS Safety Report 4630695-9 (Version None)
Quarter: 2005Q2

REPORT INFORMATION
  Report Type: 
  Country: None (occurrence: None)
  Receive Date: 20050408
  Receipt Date: 20030807
  Transmission Date: 20051028
  Serious: Yes (Life-Threatening, Hospitalization)
  Sender: FDA-Public Use
  Company Number: BR-ROCHE-344204

PATIENT
  Age: 64 Year
  Sex: Male
  Weight: 64 kg

DRUGS (38)
  1. DACLIZUMAB [Suspect]
     Route: 042
     Dates: start: 20030530
  2. DACLIZUMAB [Suspect]
     Dosage: FOR FOUR DOSES. DOSES GIVEN ON 15 JUNE 2003, 30 JUNE 2003, 11 JULY 2003 AND 23 JULY 2003.
     Route: 042
     Dates: start: 20030615, end: 20030729
  3. MYCOPHENOLATE MOFETIL [Suspect]
     Route: 048
     Dates: start: 20030708
  4. MYCOPHENOLATE MOFETIL [Suspect]
     Route: 048
     Dates: start: 20030530
  5. MYCOPHENOLATE MOFETIL [Suspect]
     Route: 048
     Dates: start: 20030606
  6. MYCOPHENOLATE MOFETIL [Suspect]
     Route: 048
     Dates: start: 20030608
  7. MYCOPHENOLATE MOFETIL [Suspect]
     Route: 048
     Dates: start: 20030609
  8. MYCOPHENOLATE MOFETIL [Suspect]
     Route: 048
     Dates: start: 20030611
  9. MYCOPHENOLATE MOFETIL [Suspect]
     Route: 048
     Dates: start: 20030628
  10. MYCOPHENOLATE MOFETIL [Suspect]
     Route: 048
     Dates: start: 20030702
  11. MYCOPHENOLATE MOFETIL [Suspect]
     Route: 048
     Dates: start: 20030819, end: 20040517
  12. TACROLIMUS [Suspect]
     Route: 048
     Dates: start: 20030722
  13. TACROLIMUS [Suspect]
     Route: 048
     Dates: start: 20030530
  14. TACROLIMUS [Suspect]
     Route: 048
     Dates: start: 20030610
  15. TACROLIMUS [Suspect]
     Route: 048
     Dates: start: 20030627
  16. TACROLIMUS [Suspect]
     Route: 048
     Dates: start: 20030811
  17. TACROLIMUS [Suspect]
     Route: 048
     Dates: start: 20030903
  18. TACROLIMUS [Suspect]
     Route: 048
     Dates: start: 20031113
  19. TACROLIMUS [Suspect]
     Route: 048
     Dates: start: 20040423, end: 20040517
  20. PREDNISONE [Suspect]
     Route: 048
     Dates: start: 20030729
  21. PREDNISONE [Suspect]
     Route: 048
     Dates: start: 20030530
  22. PREDNISONE [Suspect]
     Route: 048
     Dates: start: 20030531
  23. PREDNISONE [Suspect]
     Route: 048
     Dates: start: 20030607
  24. PREDNISONE [Suspect]
     Route: 048
     Dates: start: 20030614
  25. PREDNISONE [Suspect]
     Route: 048
     Dates: start: 20030623
  26. PREDNISONE [Suspect]
     Route: 048
     Dates: start: 20030628
  27. PREDNISONE [Suspect]
     Route: 048
     Dates: start: 20030705
  28. PREDNISONE [Suspect]
     Route: 048
     Dates: start: 20030718
  29. PREDNISONE [Suspect]
     Route: 048
     Dates: start: 20031113
  30. ATENOLOL [Concomitant]
     Route: 048
     Dates: start: 20030531
  31. INSULINE NPH [Concomitant]
     Route: 058
     Dates: start: 20030606
  32. SULFA-TRIMETHOPRIM [Concomitant]
     Dosage: FROM 5 NOVEMBER 2003: 800MG TID; FROM 29 APRIL 2004: 800MG BID.
     Route: 048
     Dates: start: 20031105, end: 20040530
  33. FUROSEMIDE [Concomitant]
  34. FERROUS SULFATE TAB [Concomitant]
  35. FOLIC ACID [Concomitant]
  36. COMPLEX B [Concomitant]
  37. OMEPRAZOLE [Concomitant]
  38. POLARAMINE [Concomitant]
     Dates: start: 20031025, end: 20031025

REACTIONS (11)
  - BLASTOMYCOSIS [None]
  - CEREBRAL ATROPHY [None]
  - CRYPTOCOCCOSIS [None]
  - ESCHERICHIA INFECTION [None]
  - HALLUCINATION [None]
  - HEADACHE [None]
  - NAUSEA [None]
  - PNEUMONIA [None]
  - PYREXIA [None]
  - URINARY TRACT INFECTION [None]
  - VOMITING [None]
